FAERS Safety Report 8763466 (Version 2)
Quarter: 2012Q4

REPORT INFORMATION
  Report Type: Spontaneous
  Country: None (occurrence: None)
  Receive Date: 20120827
  Receipt Date: 20120905
  Transmission Date: 20130627
  Serious: Yes (Other)
  Sender: FDA-Public Use
  Company Number: AUR-APL-2012-03508

PATIENT
  Age: 68 Year
  Sex: Female
  Weight: 55 kg

DRUGS (8)
  1. MIRTAZAPINE [Suspect]
     Indication: ANXIETY
     Route: 048
     Dates: end: 20120703
  2. MIRTAZAPINE [Suspect]
     Indication: DEPRESSION
     Route: 048
     Dates: end: 20120703
  3. MIRTAZAPINE [Suspect]
     Indication: ANXIETY
  4. MIRTAZAPINE [Suspect]
     Indication: DEPRESSION
  5. DOUBLEBASE (HYDROMOL /00906601/) [Concomitant]
     Dosage: (1.5 G, 1.5 G/DAY)
  6. PARAFFIN LIGHT LIQUID (PARAFFIN, LIQUID) [Concomitant]
  7. QUININE SULPHATE (QUININE SULFATE) [Concomitant]
  8. MINERAL OIL (MINERAL OIL EMULSION) [Concomitant]

REACTIONS (2)
  - Chromaturia [None]
  - Faeces discoloured [None]
